FAERS Safety Report 6937614-0 (Version None)
Quarter: 2010Q3

REPORT INFORMATION
  Report Type: 
  Country: None (occurrence: None)
  Receive Date: 20100823
  Receipt Date: 20100819
  Transmission Date: 20110219
  Serious: Yes (Disabling, Other)
  Sender: FDA-Public Use
  Company Number: US-MERCK-0610USA12817

PATIENT
  Age: 61 Year
  Sex: Female
  Weight: 50 kg

DRUGS (5)
  1. FOSAMAX [Suspect]
     Indication: OSTEOPOROSIS
     Route: 048
     Dates: start: 20000101
  2. BONIVA [Suspect]
     Route: 048
     Dates: start: 20050101, end: 20080101
  3. ZETIA [Concomitant]
     Route: 048
  4. CALCIUM (UNSPECIFIED) [Concomitant]
     Route: 065
  5. ADVIL LIQUI-GELS [Concomitant]
     Route: 065

REACTIONS (4)
  - JAW DISORDER [None]
  - JAW FRACTURE [None]
  - OSTEONECROSIS OF JAW [None]
  - SENSORY DISTURBANCE [None]
